FAERS Safety Report 6874236-4 (Version None)
Quarter: 2010Q3

REPORT INFORMATION
  Report Type: 
  Country: None (occurrence: None)
  Receive Date: 20100723
  Receipt Date: 20090604
  Transmission Date: 20110219
  Serious: No
  Sender: FDA-Public Use
  Company Number: US-PFIZER INC-2009198482

PATIENT
  Sex: Female
  Weight: 80.4 kg

DRUGS (4)
  1. CHANTIX [Suspect]
     Indication: SMOKING CESSATION THERAPY
     Dosage: 1 PILL IN THE MORNING
     Dates: start: 20090301, end: 20090411
  2. CALCIUM W/MAGNESIUM [Concomitant]
     Dosage: UNK
  3. FISH OIL [Concomitant]
     Dosage: UNK
  4. TRAZODONE [Concomitant]
     Dosage: UNK

REACTIONS (7)
  - ASTHENIA [None]
  - CARDIAC FLUTTER [None]
  - COLD SWEAT [None]
  - DEPRESSION [None]
  - DIZZINESS [None]
  - EUPHORIC MOOD [None]
  - TOBACCO WITHDRAWAL SYMPTOMS [None]
